FAERS Safety Report 5477904-4 (Version None)
Quarter: 2007Q4

REPORT INFORMATION
  Report Type: 
  Country: None (occurrence: None)
  Receive Date: 20071005
  Receipt Date: 20071001
  Transmission Date: 20080405
  Serious: Yes (Death, Other)
  Sender: FDA-Public Use
  Company Number: PHEH2006US03508

PATIENT
  Age: 73 Year
  Sex: Female
  Weight: 56.689 kg

DRUGS (9)
  1. ZOMETA [Suspect]
     Indication: BREAST CANCER
     Dosage: UNK,UNK
     Route: 042
     Dates: start: 20030801
  2. AREDIA [Suspect]
     Indication: BREAST CANCER
     Dosage: UNK,UNK
     Dates: start: 20030101
  3. SPIRONOLACTONE [Concomitant]
     Dosage: 50 MG, QD
     Route: 048
  4. ALLEGRA [Concomitant]
     Dosage: 60 MG, PRN
     Route: 048
  5. ZANTAC [Concomitant]
     Dosage: 75 MG, QD
     Route: 048
  6. TYLENOL (CAPLET) [Concomitant]
     Dosage: 500 MG, PRN EVERY 4-6 HOURS
  7. TYLENOL (CAPLET) [Concomitant]
     Dosage: 500 MG, PRN EVERY 4-6 HOURS
  8. ARIMIDEX [Concomitant]
     Indication: BREAST CANCER
     Dosage: 1 MG, QD
     Route: 048
  9. DIGOXIN [Concomitant]
     Dosage: 0.125 MG, QD
     Route: 048

REACTIONS (21)
  - ANXIETY [None]
  - BONE DISORDER [None]
  - EATING DISORDER [None]
  - EMOTIONAL DISTRESS [None]
  - GASTROINTESTINAL DISORDER [None]
  - IMPAIRED HEALING [None]
  - INFECTION [None]
  - OPEN WOUND [None]
  - ORAL INTAKE REDUCED [None]
  - ORAL PAIN [None]
  - ORAL TORUS [None]
  - OSTEOMYELITIS [None]
  - OSTEONECROSIS [None]
  - OVERDOSE [None]
  - PAIN [None]
  - PHYSICAL DISABILITY [None]
  - PRIMARY SEQUESTRUM [None]
  - STENT PLACEMENT [None]
  - THERAPEUTIC PROCEDURE [None]
  - TOOTH EXTRACTION [None]
  - TRANSITIONAL CELL CARCINOMA [None]
